FAERS Safety Report 9010199 (Version 1)
Quarter: 2013Q1

REPORT INFORMATION
  Report Type: Spontaneous
  Country: US (occurrence: US)
  Receive Date: 20130110
  Receipt Date: 20130110
  Transmission Date: 20140127
  Serious: Yes (Hospitalization)
  Sender: FDA-Public Use
  Company Number: US-BAYER-2013-001552

PATIENT
  Age: 23 Year
  Sex: Female
  Weight: 152.83 kg

DRUGS (8)
  1. YASMIN [Suspect]
  2. YAZ [Suspect]
  3. IBUPROFEN [Concomitant]
     Route: 048
  4. MULTIVITAMIN [Concomitant]
     Route: 048
  5. PROTONIX [Concomitant]
     Indication: GASTROOESOPHAGEAL REFLUX DISEASE
     Route: 048
  6. TYLENOL [Concomitant]
     Indication: PAIN
     Route: 048
  7. SYNTHROID [Concomitant]
     Dosage: 0.025 MCG, UNK
     Route: 048
  8. METRONIDAZOLE [Concomitant]
     Dosage: 500 MG, UNK
     Route: 048

REACTIONS (1)
  - Deep vein thrombosis [None]
